FAERS Safety Report 21499983 (Version 1)
Quarter: 2022Q4

REPORT INFORMATION
  Report Type: Spontaneous
  Country: CA (occurrence: CA)
  Receive Date: 20221024
  Receipt Date: 20221024
  Transmission Date: 20230113
  Serious: Yes (Hospitalization)
  Sender: FDA-Public Use
  Company Number: CA-PFIZER INC-202201240529

PATIENT
  Age: 83 Year
  Sex: Male
  Weight: 77 kg

DRUGS (45)
  1. METHOTREXATE SODIUM [Suspect]
     Active Substance: METHOTREXATE SODIUM
     Indication: Pemphigoid
     Dosage: 10 MG, WEEKLY
     Route: 048
  2. POTASSIUM CHLORIDE [Suspect]
     Active Substance: POTASSIUM CHLORIDE
  3. ACETAMINOPHEN [Concomitant]
     Active Substance: ACETAMINOPHEN
  4. ALLOPURINOL [Concomitant]
     Active Substance: ALLOPURINOL
  5. ASPIRIN [Concomitant]
     Active Substance: ASPIRIN
     Route: 065
  6. ATORVASTATIN [Concomitant]
     Active Substance: ATORVASTATIN
     Route: 065
  7. BISACODYL [Concomitant]
     Active Substance: BISACODYL
  8. BUDESONIDE [Concomitant]
     Active Substance: BUDESONIDE
  9. CALCIUM CARBONATE\VITAMIN D [Concomitant]
     Active Substance: CALCIUM CARBONATE\VITAMIN D
  10. VITAMINS [Concomitant]
     Active Substance: VITAMINS
  11. CEPHALEXIN [Concomitant]
     Active Substance: CEPHALEXIN
  12. CLOBETASOL PROPIONATE [Concomitant]
     Active Substance: CLOBETASOL PROPIONATE
  13. CYANOCOBALAMIN [Concomitant]
     Active Substance: CYANOCOBALAMIN
  14. DEXILANT [Concomitant]
     Active Substance: DEXLANSOPRAZOLE
  15. DILTIAZEM [Concomitant]
     Active Substance: DILTIAZEM
  16. DOCUSATE SODIUM [Concomitant]
     Active Substance: DOCUSATE SODIUM
  17. ENOXAPARIN [Concomitant]
     Active Substance: ENOXAPARIN
  18. EPREX [Concomitant]
     Active Substance: ERYTHROPOIETIN
  19. FILGRASTIM [Concomitant]
     Active Substance: FILGRASTIM
  20. FINASTERIDE [Concomitant]
     Active Substance: FINASTERIDE
  21. FOLIC ACID [Concomitant]
     Active Substance: FOLIC ACID
  22. FUROSEMIDE [Concomitant]
     Active Substance: FUROSEMIDE
  23. GLICLAZIDE [Concomitant]
     Active Substance: GLICLAZIDE
  24. ZINC GLUCONATE [Concomitant]
     Active Substance: ZINC GLUCONATE
  25. GLYCERIN [Concomitant]
     Active Substance: GLYCERIN
  26. HEPARIN SODIUM [Concomitant]
     Active Substance: HEPARIN SODIUM
  27. HYDROXYZINE [Concomitant]
     Active Substance: HYDROXYZINE HYDROCHLORIDE
  28. INSULIN NOS [Concomitant]
     Active Substance: INSULIN NOS
  29. IRBESARTAN [Concomitant]
     Active Substance: IRBESARTAN
     Route: 065
  30. LORAZEPAM [Concomitant]
     Active Substance: LORAZEPAM
     Route: 065
  31. MAGNESIUM CITRATE [Concomitant]
     Active Substance: MAGNESIUM CITRATE
  32. MAGNESIUM OXIDE [Concomitant]
     Active Substance: MAGNESIUM OXIDE
  33. MEROPENEM [Concomitant]
     Active Substance: MEROPENEM
  34. METFORMIN [Concomitant]
     Active Substance: METFORMIN HYDROCHLORIDE
  35. MOMETASONE FUROATE [Concomitant]
     Active Substance: MOMETASONE FUROATE
  36. PANTOPRAZOLE [Concomitant]
     Active Substance: PANTOPRAZOLE
  37. PEG 3350 [Concomitant]
     Active Substance: POLYETHYLENE GLYCOL 3350
  38. PREDNISONE [Concomitant]
     Active Substance: PREDNISONE
  39. PREGABALIN [Concomitant]
     Active Substance: PREGABALIN
  40. QUETIAPINE [Concomitant]
     Active Substance: QUETIAPINE
  41. RANITIDINE [Concomitant]
     Active Substance: RANITIDINE
  42. TAMSULOSIN [Concomitant]
     Active Substance: TAMSULOSIN
  43. PIPERACILLIN SODIUM\TAZOBACTAM SODIUM [Concomitant]
     Active Substance: PIPERACILLIN SODIUM\TAZOBACTAM SODIUM
  44. THIAMINE HYDROCHLORIDE [Concomitant]
     Active Substance: THIAMINE HYDROCHLORIDE
  45. VITAMIN D NOS [Concomitant]
     Active Substance: VITAMIN D NOS

REACTIONS (5)
  - Acute kidney injury [Recovered/Resolved]
  - Diarrhoea [Recovered/Resolved]
  - Pancytopenia [Recovered/Resolved]
  - Pneumonia bacterial [Recovered/Resolved]
  - Off label use [Recovered/Resolved]
